FAERS Safety Report 7562598-4 (Version None)
Quarter: 2011Q2

REPORT INFORMATION
  Report Type: 
  Country: None (occurrence: None)
  Receive Date: 20110622
  Receipt Date: 20110614
  Transmission Date: 20111010
  Serious: Yes (Other)
  Sender: FDA-Public Use
  Company Number: CA-US-EMD SERONO, INC.-7065173

PATIENT
  Sex: Female

DRUGS (1)
  1. REBIF [Suspect]
     Indication: RELAPSING-REMITTING MULTIPLE SCLEROSIS
     Dates: start: 19991227

REACTIONS (11)
  - INSOMNIA [None]
  - SCIATICA [None]
  - FALL [None]
  - LUMBAR SPINAL STENOSIS [None]
  - FIBROMYALGIA [None]
  - HYPOAESTHESIA [None]
  - THROMBOSIS [None]
  - TEMPOROMANDIBULAR JOINT SYNDROME [None]
  - PETIT MAL EPILEPSY [None]
  - RHEUMATOID ARTHRITIS [None]
  - OEDEMA PERIPHERAL [None]
